FAERS Safety Report 8665291 (Version 4)
Quarter: 2012Q4

REPORT INFORMATION
  Report Type: 
  Country: US (occurrence: US)
  Receive Date: 20120716
  Receipt Date: 20121008
  Transmission Date: 20130627
  Serious: Yes (Death, Other)
  Sender: FDA-Public Use
  Company Number: US-SHIRE-ALL1-2012-03372

PATIENT
  Age: 24 None
  Sex: Female
  Weight: 62.13 kg

DRUGS (4)
  1. VYVANSE [Suspect]
     Indication: ATTENTION DEFICIT/HYPERACTIVITY DISORDER
     Dosage: 60 mg, 1x/day:qd
     Route: 048
     Dates: start: 201108
  2. VYVANSE [Suspect]
     Dosage: UNK, Unknown
     Route: 048
     Dates: start: 20110222, end: 201108
  3. ZOLOFT [Concomitant]
     Indication: DYSTHYMIC DISORDER
     Dosage: 100 mg, 1x/day:qd
     Route: 065
     Dates: start: 20110819
  4. TRAZODONE [Concomitant]
     Indication: INSOMNIA
     Dosage: 50 mg, 1x/day:qd (at bedtime)
     Route: 065
     Dates: start: 20110819

REACTIONS (4)
  - Sudden death [Fatal]
  - Toxicity to various agents [Fatal]
  - Intentional drug misuse [Unknown]
  - Drug ineffective [Unknown]
